FAERS Safety Report 8297672-0 (Version None)
Quarter: 2012Q2

REPORT INFORMATION
  Report Type: 
  Country: None (occurrence: None)
  Receive Date: 20120419
  Receipt Date: 20120417
  Transmission Date: 20120825
  Serious: Yes (Hospitalization, Other)
  Sender: FDA-Public Use
  Company Number: US-JNJFOC-20120213754

PATIENT
  Sex: Female
  Weight: 68.5 kg

DRUGS (6)
  1. LUNESTA [Concomitant]
     Route: 048
  2. XARELTO [Suspect]
     Indication: THROMBOSIS PROPHYLAXIS
     Route: 048
     Dates: start: 20120214, end: 20120223
  3. LISINOPRIL [Concomitant]
     Route: 048
  4. NEXIUM [Concomitant]
     Route: 048
  5. COREG [Concomitant]
     Route: 048
  6. PERCOCET [Concomitant]
     Route: 048

REACTIONS (4)
  - ADRENAL HAEMORRHAGE [None]
  - THROMBOCYTOPENIA [None]
  - HYPERTENSION [None]
  - CONSTIPATION [None]
